FAERS Safety Report 4962596-0 (Version None)
Quarter: 2006Q1

REPORT INFORMATION
  Report Type: 
  Country: None (occurrence: None)
  Receive Date: 20060201
  Receipt Date: 20051110
  Transmission Date: 20060701
  Serious: No
  Sender: FDA-Public Use
  Company Number: 2005PV004126

PATIENT
  Sex: Female
  Weight: 92.9874 kg

DRUGS (7)
  1. BYETTA [Suspect]
     Indication: DIABETES MELLITUS
     Dosage: 10 MCG;SC
     Route: 058
     Dates: start: 20050920, end: 20051020
  2. GLUCOTROL [Concomitant]
  3. GLUCOPHAGE [Concomitant]
  4. FISH OIL [Concomitant]
  5. TRICOR [Concomitant]
  6. ZOCOR [Concomitant]
  7. ZOLOFT [Concomitant]

REACTIONS (1)
  - PAIN IN EXTREMITY [None]
